FAERS Safety Report 20872152 (Version 16)
Quarter: 2024Q3

REPORT INFORMATION
  Report Type: Report from Study
  Country: IN (occurrence: IN)
  Receive Date: 20220525
  Receipt Date: 20240927
  Transmission Date: 20241017
  Serious: Yes (Death, Hospitalization, Other)
  Sender: ROCHE
  Company Number: IN-ROCHE-3099231

PATIENT
  Age: 70 Year
  Sex: Female
  Weight: 68.0 kg

DRUGS (1)
  1. KADCYLA [Suspect]
     Active Substance: ADO-TRASTUZUMAB EMTANSINE
     Indication: Breast cancer
     Route: 042

REACTIONS (13)
  - Pneumonia [Unknown]
  - COVID-19 [Recovered/Resolved]
  - Pulmonary hypertension [Recovered/Resolved]
  - Blindness unilateral [Recovered/Resolved]
  - Cataract [Recovered/Resolved]
  - Haematological infection [Unknown]
  - Pyrexia [Unknown]
  - Cardiac disorder [Recovered/Resolved]
  - Ocular hyperaemia [Recovered/Resolved]
  - Eye pain [Recovered/Resolved]
  - Off label use [Unknown]
  - Fatigue [Unknown]
  - Death [Fatal]
